FAERS Safety Report 7500773-5 (Version None)
Quarter: 2011Q2

REPORT INFORMATION
  Report Type: 
  Country: None (occurrence: None)
  Receive Date: 20110524
  Receipt Date: 20110509
  Transmission Date: 20111010
  Serious: Yes (Other)
  Sender: FDA-Public Use
  Company Number: PHHY2011US39876

PATIENT
  Sex: Male

DRUGS (12)
  1. METOPROLOL SUCCINATE EXTENDED RELEASE [Concomitant]
     Dosage: 1 DF, BID
  2. UNKNOWN PAIN MEDICATION [Concomitant]
     Indication: PAIN
  3. TEGRETOL-XR [Suspect]
     Indication: TRIGEMINAL NEURALGIA
     Dosage: 100 MG, TID
     Route: 048
  4. TEGRETOL [Suspect]
     Dosage: 100 MG, UNK
     Route: 048
  5. SIMVASTATIN [Concomitant]
  6. ENALAPRIL MALEATE [Concomitant]
  7. TEGRETOL-XR [Suspect]
     Dosage: TWO 100MG TABLETS IN THE MORNING, AT MIDDAY AND THE EVENING
     Route: 048
  8. TEGRETOL-XR [Suspect]
     Dosage: TWO 100MG TABLETS IN THE MORNING AND MIDDAY, AND THREE TABLETS IN THE EVENING
     Route: 048
  9. MORPHINE [Suspect]
     Indication: PAIN
  10. TOPRAL [Concomitant]
  11. FINASTERIDE [Concomitant]
  12. ASPIRIN [Concomitant]

REACTIONS (9)
  - CHEST DISCOMFORT [None]
  - BLOOD PRESSURE INCREASED [None]
  - MASTICATION DISORDER [None]
  - PAIN [None]
  - VOMITING [None]
  - HYPERHIDROSIS [None]
  - EPISTAXIS [None]
  - MALAISE [None]
  - WEIGHT DECREASED [None]
